FAERS Safety Report 19865191 (Version 1)
Quarter: 2021Q3

REPORT INFORMATION
  Report Type: Not Available
  Country: None (occurrence: None)
  Receive Date: 20210921
  Receipt Date: 20210921
  Transmission Date: 20211014
  Serious: No
  Sender: FDA-Public Use
  Company Number: US-AKORN-171088

PATIENT
  Age: 65 Year
  Sex: Male

DRUGS (1)
  1. AK?POLY?BAC [Suspect]
     Active Substance: BACITRACIN ZINC\POLYMYXIN B SULFATE

REACTIONS (1)
  - Hypersensitivity [Unknown]
